FAERS Safety Report 23199683 (Version 1)
Quarter: 2023Q4

REPORT INFORMATION
  Report Type: Spontaneous
  Country: US (occurrence: US)
  Receive Date: 20231117
  Receipt Date: 20231117
  Transmission Date: 20240110
  Serious: No
  Sender: FDA-Public Use
  Company Number: US-Stemline Therapeutics, Inc.-2023ST003102

PATIENT
  Age: 70 Year
  Sex: Female

DRUGS (7)
  1. ORSERDU [Suspect]
     Active Substance: ELACESTRANT
     Indication: Product used for unknown indication
     Dosage: 86 MG, 4 TABLETS, ONCE A DAY
     Route: 048
     Dates: start: 20230812
  2. ASPIRIN [Concomitant]
     Active Substance: ASPIRIN
     Indication: Product used for unknown indication
  3. GAS-X [Concomitant]
     Active Substance: DIMETHICONE
     Indication: Product used for unknown indication
  4. MINOXIDIL [Concomitant]
     Active Substance: MINOXIDIL
     Indication: Product used for unknown indication
  5. ONDANSETRON [Concomitant]
     Active Substance: ONDANSETRON
     Indication: Product used for unknown indication
  6. One Daily Multivitamin Women [Concomitant]
     Indication: Product used for unknown indication
  7. Triamcinolone Acetonide External Cream [Concomitant]
     Indication: Product used for unknown indication

REACTIONS (3)
  - Flatulence [Unknown]
  - Abdominal distension [Unknown]
  - Constipation [Recovered/Resolved]
